FAERS Safety Report 14630906 (Version 3)
Quarter: 2019Q3

REPORT INFORMATION
  Report Type: Spontaneous
  Country: ES (occurrence: ES)
  Receive Date: 20180313
  Receipt Date: 20190711
  Transmission Date: 20191004
  Serious: Yes (Congenital Anomaly, Other)
  Sender: FDA-Public Use
  Company Number: ES-SA-2018SA067807

PATIENT
  Sex: Male
  Weight: 3.4 kg

DRUGS (10)
  1. LANTUS [Suspect]
     Active Substance: INSULIN GLARGINE
     Indication: TYPE 1 DIABETES MELLITUS
     Dosage: 47 IU,QD
     Route: 064
     Dates: start: 20160128, end: 20161026
  2. NOVORAPID [Suspect]
     Active Substance: INSULIN ASPART
     Dosage: 32 IU,QD
     Route: 063
     Dates: start: 20161026
  3. NATALBEN SUPRA [Concomitant]
     Active Substance: MINERALS\OMEGA-3 FATTY ACIDS\VITAMINS
     Indication: PROPHYLAXIS
     Dosage: UNK UNK,UNK
     Route: 065
     Dates: start: 20160505
  4. NOVORAPID [Suspect]
     Active Substance: INSULIN ASPART
     Indication: TYPE 1 DIABETES MELLITUS
     Dosage: 32 IU,QD
     Route: 064
     Dates: start: 20160128, end: 20161026
  5. EUTIROX [Concomitant]
     Active Substance: LEVOTHYROXINE SODIUM
     Indication: HYPOTHYROIDISM
     Dosage: UNK UNK,UNK
     Route: 065
     Dates: start: 20160128, end: 20161026
  6. LANTUS [Suspect]
     Active Substance: INSULIN GLARGINE
     Dosage: 23 IU,QD
     Route: 064
  7. ACFOL [Concomitant]
     Active Substance: FOLIC ACID
     Indication: PROPHYLAXIS
     Dosage: UNK UNK,UNK
     Route: 065
     Dates: start: 20160128, end: 201605
  8. ADIRO [Concomitant]
     Active Substance: ASPIRIN
     Indication: LABOUR COMPLICATION
     Dosage: UNK UNK,UNK
     Route: 065
     Dates: start: 20160314, end: 20161026
  9. NOVORAPID [Suspect]
     Active Substance: INSULIN ASPART
     Dosage: 16 IU,QD
     Route: 064
     Dates: start: 20161120
  10. LANTUS [Suspect]
     Active Substance: INSULIN GLARGINE
     Dosage: 47 IU,QD
     Route: 063
     Dates: start: 20161026

REACTIONS (4)
  - Dacryostenosis congenital [Recovered/Resolved]
  - Exposure via breast milk [Not Recovered/Not Resolved]
  - Hypoglycaemia neonatal [Recovered/Resolved]
  - Foetal exposure during pregnancy [Recovered/Resolved]

NARRATIVE: CASE EVENT DATE: 20160128
